FAERS Safety Report 5740808-3 (Version None)
Quarter: 2008Q2

REPORT INFORMATION
  Report Type: 
  Country: None (occurrence: None)
  Receive Date: 20080515
  Receipt Date: 20080229
  Transmission Date: 20081010
  Serious: No
  Sender: FDA-Public Use
  Company Number: WAES 0803USA00385

PATIENT
  Age: 45 Year
  Sex: Male
  Weight: 71.6683 kg

DRUGS (5)
  1. TAB ISENTRESS [Suspect]
     Indication: HIV INFECTION
     Dosage: 400 MG/BID/PO; 400 MG/BID/PO
     Route: 048
     Dates: start: 20080218, end: 20080218
  2. TAB ISENTRESS [Suspect]
     Indication: HIV INFECTION
     Dosage: 400 MG/BID/PO; 400 MG/BID/PO
     Route: 048
     Dates: start: 20080220
  3. PREZISTA [Suspect]
     Indication: BLOOD HIV RNA
     Dosage: 600 MG/BID/PO
     Route: 048
     Dates: start: 20080218
  4. NORVIR [Concomitant]
  5. TRUVADA [Concomitant]

REACTIONS (2)
  - LIP SWELLING [None]
  - SWOLLEN TONGUE [None]
